FAERS Safety Report 15008703 (Version 2)
Quarter: 2019Q2

REPORT INFORMATION
  Report Type: Spontaneous
  Country: US (occurrence: US)
  Receive Date: 20180613
  Receipt Date: 20190510
  Transmission Date: 20190711
  Serious: No
  Sender: FDA-Public Use
  Company Number: US-BIOGEN-2018BI00588084

PATIENT
  Sex: Female

DRUGS (2)
  1. TECFIDERA [Suspect]
     Active Substance: DIMETHYL FUMARATE
     Dosage: MAINTENANCE DOSE
     Route: 050
  2. TECFIDERA [Suspect]
     Active Substance: DIMETHYL FUMARATE
     Indication: MULTIPLE SCLEROSIS
     Route: 050
     Dates: start: 20180516, end: 20180529

REACTIONS (6)
  - Unintentional use for unapproved indication [Unknown]
  - Abdominal distension [Unknown]
  - Hypersensitivity [Unknown]
  - Gastroenteritis viral [Not Recovered/Not Resolved]
  - Vomiting projectile [Unknown]
  - Constipation [Unknown]
